FAERS Safety Report 24361583 (Version 1)
Quarter: 2024Q3

REPORT INFORMATION
  Report Type: Other
  Country: CN (occurrence: CN)
  Receive Date: 20240925
  Receipt Date: 20240925
  Transmission Date: 20241017
  Serious: Yes (Other)
  Sender: APPCO PHARMA
  Company Number: CN-Appco Pharma LLC-2162020

PATIENT
  Age: 24 Year
  Sex: Male

DRUGS (3)
  1. CLINDAMYCIN PALMITATE HYDROCHLORIDE [Suspect]
     Active Substance: CLINDAMYCIN PALMITATE HYDROCHLORIDE
     Indication: Productive cough
  2. CLINDAMYCIN PALMITATE HYDROCHLORIDE [Suspect]
     Active Substance: CLINDAMYCIN PALMITATE HYDROCHLORIDE
     Indication: Nasopharyngitis
  3. CYTARABINE [Suspect]
     Active Substance: CYTARABINE

REACTIONS (2)
  - Toxic epidermal necrolysis [Recovered/Resolved]
  - Sepsis [Recovered/Resolved]
